FAERS Safety Report 8256113-X (Version None)
Quarter: 2012Q2

REPORT INFORMATION
  Report Type: 
  Country: None (occurrence: None)
  Receive Date: 20120403
  Receipt Date: 20120322
  Transmission Date: 20120825
  Serious: Yes (Hospitalization)
  Sender: FDA-Public Use
  Company Number: SE-ROCHE-712878

PATIENT
  Age: 57 Year
  Sex: Female

DRUGS (2)
  1. PREDNISOLONE [Concomitant]
     Indication: PRODUCT USED FOR UNKNOWN INDICATION
     Dosage: DRUG REPORTED: T PREDNISOLON
     Route: 065
  2. ACTEMRA [Suspect]
     Indication: RHEUMATOID ARTHRITIS
     Dosage: FORM: CONC FOR SOL FOR INF, STRENGTH: 20 MG/ML
     Route: 042
     Dates: start: 20100120, end: 20100605

REACTIONS (2)
  - BLOOD PRESSURE INCREASED [None]
  - CONVULSION [None]
